FAERS Safety Report 4701734-1 (Version None)
Quarter: 2005Q2

REPORT INFORMATION
  Report Type: 
  Country: None (occurrence: None)
  Receive Date: 20050627
  Receipt Date: 20050620
  Transmission Date: 20051028
  Serious: Yes (Life-Threatening)
  Sender: FDA-Public Use
  Company Number: ST-2005-008437

PATIENT
  Age: 78 Year
  Sex: Female

DRUGS (8)
  1. OLMETEC [Suspect]
     Indication: HYPERTENSION
     Dosage: 20 MG QD PO
     Route: 048
     Dates: end: 20050613
  2. ALDACTONE [Suspect]
     Indication: HYPERTENSION
     Dosage: 25 MG QD PO
     Route: 048
     Dates: end: 20050613
  3. ASPIRIN [Concomitant]
  4. LASIX [Concomitant]
  5. AMARYL [Concomitant]
  6. LIDUC M10 [Concomitant]
  7. DIGOSIN [Concomitant]
  8. APLACE [Concomitant]

REACTIONS (3)
  - BRADYCARDIA [None]
  - DEPRESSED LEVEL OF CONSCIOUSNESS [None]
  - HYPERKALAEMIA [None]
